FAERS Safety Report 9364113 (Version 3)
Quarter: 2013Q3

REPORT INFORMATION
  Report Type: Report from Study
  Country: NL (occurrence: NL)
  Receive Date: 20130624
  Receipt Date: 20130712
  Transmission Date: 20140515
  Serious: Yes (Hospitalization)
  Sender: FDA-Public Use
  Company Number: NL-ROCHE-1238013

PATIENT
  Age: 54 Year
  Sex: Female
  Weight: 79 kg

DRUGS (9)
  1. VEMURAFENIB [Suspect]
     Indication: MALIGNANT MELANOMA
     Dosage: LAST DOSE PRIOR TO SAE:14/NOV/2012
     Route: 048
     Dates: start: 20120403
  2. VEMURAFENIB [Suspect]
     Dosage: LAST DOSE PRIOR TO SAE:22/APR/2013
     Route: 048
     Dates: start: 20121115
  3. PARACETAMOL [Concomitant]
     Route: 065
     Dates: start: 20120124
  4. DICLOFENAC [Concomitant]
     Route: 065
     Dates: start: 20120506
  5. CHOLECALCIFEROL [Concomitant]
     Route: 065
     Dates: start: 20130307
  6. DEPAKINE [Concomitant]
     Route: 065
     Dates: start: 20111128, end: 20130422
  7. DEPAKINE [Concomitant]
     Route: 065
     Dates: start: 20130423
  8. CALCIUMCARBONAAT [Concomitant]
     Route: 065
     Dates: start: 20130307
  9. OMEPRAZOL [Concomitant]
     Route: 065
     Dates: start: 20130529

REACTIONS (1)
  - Convulsion [Recovering/Resolving]
